FAERS Safety Report 6869437-5 (Version None)
Quarter: 2010Q3

REPORT INFORMATION
  Report Type: 
  Country: None (occurrence: None)
  Receive Date: 20100722
  Receipt Date: 20100722
  Transmission Date: 20110219
  Serious: Yes (Hospitalization)
  Sender: FDA-Public Use
  Company Number: None

PATIENT
  Age: 54 Year
  Sex: Female
  Weight: 114.5 kg

DRUGS (11)
  1. IXABEPILONE [Suspect]
     Indication: BREAST CANCER
     Dosage: 32MG/M2 EVERY 3 WEEKS/21 D IV
     Route: 042
     Dates: start: 20100713
  2. VORINOSTAT [Suspect]
     Indication: BREAST CANCER
     Dosage: 300MG QD X 2WKS/21 D PO
     Route: 048
     Dates: start: 20100712, end: 20100716
  3. ATENOLOL [Concomitant]
  4. IRON SUP [Concomitant]
  5. LASIX [Concomitant]
  6. POT SUP [Concomitant]
  7. SYNTHROID [Concomitant]
  8. ZOCOR [Concomitant]
  9. ULTRAM [Concomitant]
  10. VIT B [Concomitant]
  11. ZANTAC [Concomitant]

REACTIONS (6)
  - BACTERIAL INFECTION [None]
  - BLOOD CULTURE POSITIVE [None]
  - CHILLS [None]
  - DEVICE RELATED INFECTION [None]
  - FEELING ABNORMAL [None]
  - PYREXIA [None]
